FAERS Safety Report 5605300-5 (Version None)
Quarter: 2008Q1

REPORT INFORMATION
  Report Type: 
  Country: None (occurrence: None)
  Receive Date: 20080123
  Receipt Date: 20080114
  Transmission Date: 20080703
  Serious: Yes (Death)
  Sender: FDA-Public Use
  Company Number: B0503864A

PATIENT
  Sex: Male

DRUGS (9)
  1. BUSULPHAN                     (FORMULATION UNKNOWN) (GENERIC) [Suspect]
     Indication: STEM CELL TRANSPLANT
  2. CYCLOPHOSPHAMIDE [Suspect]
     Indication: STEM CELL TRANSPLANT
  3. MESNA [Suspect]
     Indication: STEM CELL TRANSPLANT
  4. PHENYTOIN [Suspect]
     Indication: CONVULSION PROPHYLAXIS
     Dosage: 400 MG PER DAY
  5. GRANULOCYTE COL.STIM.FACT                      (FORMULATION UNKNOWN) [Suspect]
     Dosage: 5 UG/KG
  6. CYTARABINE [Concomitant]
  7. CO-TRIMOXAZOLE [Concomitant]
  8. FLUCONAZOLE [Concomitant]
  9. ANTIRETROVIRAL MEDICATION [Concomitant]

REACTIONS (2)
  - MULTI-ORGAN FAILURE [None]
  - VENOOCCLUSIVE LIVER DISEASE [None]
